FAERS Safety Report 8862777 (Version 1)
Quarter: 2012Q4

REPORT INFORMATION
  Report Type: Report from Study
  Country: DE (occurrence: DE)
  Receive Date: 20121026
  Receipt Date: 20121026
  Transmission Date: 20130627
  Serious: Yes (Hospitalization)
  Sender: FDA-Public Use
  Company Number: DE-ROCHE-1066749

PATIENT
  Age: 43 Year
  Sex: Female
  Weight: 73 kg

DRUGS (5)
  1. TRASTUZUMAB [Suspect]
     Indication: BREAST CANCER
     Dosage: last dose prior to SAE 17/Jul/2012
     Route: 042
     Dates: start: 20120412, end: 20120806
  2. LAPATINIB [Suspect]
     Indication: BREAST CANCER
     Dosage: last dose prior to SAE 17/Jul/2012
     Route: 048
     Dates: start: 20120412, end: 20120806
  3. PACLITAXEL [Suspect]
     Indication: BREAST CANCER
     Dosage: last dose prior to SAE 17/Jul/2012
     Route: 042
     Dates: start: 20120412, end: 20120806
  4. DOXORUBICIN [Suspect]
     Indication: BREAST CANCER
     Dosage: last dose prior to SAE 17/Jul/2012
     Route: 042
     Dates: start: 20120412, end: 20120806
  5. FILGRASTIM [Concomitant]

REACTIONS (2)
  - Pyrexia [Recovered/Resolved]
  - Sepsis [Recovered/Resolved]
